FAERS Safety Report 24911628 (Version 2)
Quarter: 2025Q1

REPORT INFORMATION
  Report Type: Spontaneous
  Country: CA (occurrence: CA)
  Receive Date: 20250131
  Receipt Date: 20250304
  Transmission Date: 20250408
  Serious: Yes (Other)
  Sender: ANI
  Company Number: CA-ANIPHARMA-2025-CA-000356

PATIENT
  Age: 56 Year
  Sex: Female

DRUGS (8)
  1. CANDESARTAN CILEXETIL [Suspect]
     Active Substance: CANDESARTAN CILEXETIL
     Indication: Lichen planus
     Route: 048
  2. ATENOLOL [Suspect]
     Active Substance: ATENOLOL
     Route: 048
  3. DICLOFENAC [Suspect]
     Active Substance: DICLOFENAC
  4. MISOPROSTOL [Suspect]
     Active Substance: MISOPROSTOL
  5. ESTROGENS [Suspect]
     Active Substance: ESTROGENS
     Route: 061
  6. HYDROCHLOROTHIAZIDE [Suspect]
     Active Substance: HYDROCHLOROTHIAZIDE
  7. PANTOPRAZOLE [Suspect]
     Active Substance: PANTOPRAZOLE
  8. INDAPAMIDE\PERINDOPRIL ERBUMINE [Suspect]
     Active Substance: INDAPAMIDE\PERINDOPRIL ERBUMINE

REACTIONS (3)
  - Lichen planus [Unknown]
  - Off label use [Unknown]
  - Drug ineffective for unapproved indication [Unknown]
